FAERS Safety Report 19499277 (Version 4)
Quarter: 2022Q2

REPORT INFORMATION
  Report Type: Report from Study
  Country: FR (occurrence: FR)
  Receive Date: 20210706
  Receipt Date: 20220518
  Transmission Date: 20220721
  Serious: Yes (Hospitalization)
  Sender: FDA-Public Use
  Company Number: FR-TAKEDA-FR201900579

PATIENT
  Age: 62 Year
  Sex: Female
  Weight: 58 kg

DRUGS (122)
  1. TEDUGLUTIDE [Suspect]
     Active Substance: TEDUGLUTIDE
     Indication: Short-bowel syndrome
     Dosage: 3 MILLIGRAM, QD
     Route: 042
     Dates: start: 20160404, end: 20160824
  2. TEDUGLUTIDE [Suspect]
     Active Substance: TEDUGLUTIDE
     Indication: Short-bowel syndrome
     Dosage: 3 MILLIGRAM, QD
     Route: 042
     Dates: start: 20160404, end: 20160824
  3. TEDUGLUTIDE [Suspect]
     Active Substance: TEDUGLUTIDE
     Indication: Short-bowel syndrome
     Dosage: 3 MILLIGRAM, QD
     Route: 042
     Dates: start: 20160404, end: 20160824
  4. TEDUGLUTIDE [Suspect]
     Active Substance: TEDUGLUTIDE
     Indication: Short-bowel syndrome
     Dosage: 3 MILLIGRAM, QD
     Route: 042
     Dates: start: 20160404, end: 20160824
  5. TEDUGLUTIDE [Suspect]
     Active Substance: TEDUGLUTIDE
     Dosage: 2.8 MILLIGRAM, QD
     Route: 042
     Dates: start: 20160825, end: 20160908
  6. TEDUGLUTIDE [Suspect]
     Active Substance: TEDUGLUTIDE
     Dosage: 2.8 MILLIGRAM, QD
     Route: 042
     Dates: start: 20160825, end: 20160908
  7. TEDUGLUTIDE [Suspect]
     Active Substance: TEDUGLUTIDE
     Dosage: 2.8 MILLIGRAM, QD
     Route: 042
     Dates: start: 20160825, end: 20160908
  8. TEDUGLUTIDE [Suspect]
     Active Substance: TEDUGLUTIDE
     Dosage: 2.8 MILLIGRAM, QD
     Route: 042
     Dates: start: 20160825, end: 20160908
  9. TEDUGLUTIDE [Suspect]
     Active Substance: TEDUGLUTIDE
     Dosage: 2.6 MILLIGRAM, QD
     Route: 042
     Dates: start: 20160909, end: 20160914
  10. TEDUGLUTIDE [Suspect]
     Active Substance: TEDUGLUTIDE
     Dosage: 2.6 MILLIGRAM, QD
     Route: 042
     Dates: start: 20160909, end: 20160914
  11. TEDUGLUTIDE [Suspect]
     Active Substance: TEDUGLUTIDE
     Dosage: 2.6 MILLIGRAM, QD
     Route: 042
     Dates: start: 20160909, end: 20160914
  12. TEDUGLUTIDE [Suspect]
     Active Substance: TEDUGLUTIDE
     Dosage: 2.6 MILLIGRAM, QD
     Route: 042
     Dates: start: 20160909, end: 20160914
  13. TEDUGLUTIDE [Suspect]
     Active Substance: TEDUGLUTIDE
     Dosage: 2.8 MILLIGRAM, QD
     Route: 042
     Dates: start: 20160915, end: 20161107
  14. TEDUGLUTIDE [Suspect]
     Active Substance: TEDUGLUTIDE
     Dosage: 2.8 MILLIGRAM, QD
     Route: 042
     Dates: start: 20160915, end: 20161107
  15. TEDUGLUTIDE [Suspect]
     Active Substance: TEDUGLUTIDE
     Dosage: 2.8 MILLIGRAM, QD
     Route: 042
     Dates: start: 20160915, end: 20161107
  16. TEDUGLUTIDE [Suspect]
     Active Substance: TEDUGLUTIDE
     Dosage: 2.8 MILLIGRAM, QD
     Route: 042
     Dates: start: 20160915, end: 20161107
  17. TEDUGLUTIDE [Suspect]
     Active Substance: TEDUGLUTIDE
     Dosage: 2.6 MILLIGRAM, QD
     Route: 042
     Dates: start: 20161108, end: 20161206
  18. TEDUGLUTIDE [Suspect]
     Active Substance: TEDUGLUTIDE
     Dosage: 2.6 MILLIGRAM, QD
     Route: 042
     Dates: start: 20161108, end: 20161206
  19. TEDUGLUTIDE [Suspect]
     Active Substance: TEDUGLUTIDE
     Dosage: 2.6 MILLIGRAM, QD
     Route: 042
     Dates: start: 20161108, end: 20161206
  20. TEDUGLUTIDE [Suspect]
     Active Substance: TEDUGLUTIDE
     Dosage: 2.6 MILLIGRAM, QD
     Route: 042
     Dates: start: 20161108, end: 20161206
  21. TEDUGLUTIDE [Suspect]
     Active Substance: TEDUGLUTIDE
     Dosage: 2.8 MILLIGRAM, QD
     Route: 042
     Dates: start: 20170214, end: 20170220
  22. TEDUGLUTIDE [Suspect]
     Active Substance: TEDUGLUTIDE
     Dosage: 2.8 MILLIGRAM, QD
     Route: 042
     Dates: start: 20170214, end: 20170220
  23. TEDUGLUTIDE [Suspect]
     Active Substance: TEDUGLUTIDE
     Dosage: 2.8 MILLIGRAM, QD
     Route: 042
     Dates: start: 20170214, end: 20170220
  24. TEDUGLUTIDE [Suspect]
     Active Substance: TEDUGLUTIDE
     Dosage: 2.8 MILLIGRAM, QD
     Route: 042
     Dates: start: 20170214, end: 20170220
  25. TEDUGLUTIDE [Suspect]
     Active Substance: TEDUGLUTIDE
     Dosage: 2.6 MILLIGRAM, QD
     Route: 042
     Dates: start: 20170303, end: 20170411
  26. TEDUGLUTIDE [Suspect]
     Active Substance: TEDUGLUTIDE
     Dosage: 2.6 MILLIGRAM, QD
     Route: 042
     Dates: start: 20170303, end: 20170411
  27. TEDUGLUTIDE [Suspect]
     Active Substance: TEDUGLUTIDE
     Dosage: 2.6 MILLIGRAM, QD
     Route: 042
     Dates: start: 20170303, end: 20170411
  28. TEDUGLUTIDE [Suspect]
     Active Substance: TEDUGLUTIDE
     Dosage: 2.6 MILLIGRAM, QD
     Route: 042
     Dates: start: 20170303, end: 20170411
  29. TEDUGLUTIDE [Suspect]
     Active Substance: TEDUGLUTIDE
     Dosage: 2.8 MILLIGRAM
     Route: 042
     Dates: start: 20170412
  30. TEDUGLUTIDE [Suspect]
     Active Substance: TEDUGLUTIDE
     Dosage: 2.8 MILLIGRAM
     Route: 042
     Dates: start: 20170412
  31. TEDUGLUTIDE [Suspect]
     Active Substance: TEDUGLUTIDE
     Dosage: 2.8 MILLIGRAM
     Route: 042
     Dates: start: 20170412
  32. TEDUGLUTIDE [Suspect]
     Active Substance: TEDUGLUTIDE
     Dosage: 2.8 MILLIGRAM
     Route: 042
     Dates: start: 20170412
  33. TEDUGLUTIDE [Suspect]
     Active Substance: TEDUGLUTIDE
     Dosage: 2.8 MILLIGRAM, QD
     Route: 042
     Dates: start: 20170412, end: 20181129
  34. TEDUGLUTIDE [Suspect]
     Active Substance: TEDUGLUTIDE
     Dosage: 2.8 MILLIGRAM, QD
     Route: 042
     Dates: start: 20170412, end: 20181129
  35. TEDUGLUTIDE [Suspect]
     Active Substance: TEDUGLUTIDE
     Dosage: 2.8 MILLIGRAM, QD
     Route: 042
     Dates: start: 20170412, end: 20181129
  36. TEDUGLUTIDE [Suspect]
     Active Substance: TEDUGLUTIDE
     Dosage: 2.8 MILLIGRAM, QD
     Route: 042
     Dates: start: 20170412, end: 20181129
  37. TEDUGLUTIDE [Suspect]
     Active Substance: TEDUGLUTIDE
     Dosage: 2.4 MILLIGRAM, QD
     Route: 042
     Dates: start: 20181130
  38. TEDUGLUTIDE [Suspect]
     Active Substance: TEDUGLUTIDE
     Dosage: 2.4 MILLIGRAM, QD
     Route: 042
     Dates: start: 20181130
  39. TEDUGLUTIDE [Suspect]
     Active Substance: TEDUGLUTIDE
     Dosage: 2.4 MILLIGRAM, QD
     Route: 042
     Dates: start: 20181130
  40. TEDUGLUTIDE [Suspect]
     Active Substance: TEDUGLUTIDE
     Dosage: 2.4 MILLIGRAM, QD
     Route: 042
     Dates: start: 20181130
  41. MAGNESIUM [Concomitant]
     Active Substance: MAGNESIUM
     Indication: Supplementation therapy
     Dosage: 15000 MILLIGRAM, CONTINUOUS RUNNING
     Route: 042
     Dates: start: 201911
  42. MAGNESIUM [Concomitant]
     Active Substance: MAGNESIUM
     Indication: Short-bowel syndrome
     Dosage: 1 DOSAGE FORM, TID
     Route: 048
     Dates: end: 201612
  43. MAGNESIUM [Concomitant]
     Active Substance: MAGNESIUM
     Indication: Hypomagnesaemia
     Dosage: 10 INTERNATIONAL UNIT, QD
     Route: 042
     Dates: start: 201609, end: 201609
  44. MAGNESIUM [Concomitant]
     Active Substance: MAGNESIUM
     Dosage: 2 DOSAGE FORM, TID
     Route: 048
     Dates: start: 20160922
  45. MAGNESIUM [Concomitant]
     Active Substance: MAGNESIUM
     Dosage: 160 MILLIGRAM, QID
     Route: 048
     Dates: start: 20181130, end: 20190222
  46. MAGNESIUM [Concomitant]
     Active Substance: MAGNESIUM
     Dosage: 1 DOSAGE FORM, TID
     Route: 048
     Dates: start: 20190222
  47. VITAMIN B12 [Concomitant]
     Active Substance: CYANOCOBALAMIN
     Indication: Supplementation therapy
     Dosage: 1000 MICROGRAM, 1/WEEK
     Route: 042
  48. WARFARIN SODIUM [Concomitant]
     Active Substance: WARFARIN SODIUM
     Indication: Venous thrombosis
     Dosage: 1.50 MILLIGRAM, QD
     Route: 048
     Dates: start: 20191125
  49. WARFARIN SODIUM [Concomitant]
     Active Substance: WARFARIN SODIUM
     Indication: Thrombosis prophylaxis
     Dosage: 1 UNK
     Route: 048
     Dates: end: 201611
  50. WARFARIN SODIUM [Concomitant]
     Active Substance: WARFARIN SODIUM
     Indication: Prophylaxis
     Dosage: 5 MILLIGRAM, QD
     Route: 048
     Dates: start: 201611, end: 201709
  51. WARFARIN SODIUM [Concomitant]
     Active Substance: WARFARIN SODIUM
     Dosage: 2 UNK
     Route: 048
     Dates: start: 201611
  52. WARFARIN SODIUM [Concomitant]
     Active Substance: WARFARIN SODIUM
     Dosage: 2 UNK
     Route: 048
     Dates: start: 20160307, end: 201705
  53. WARFARIN SODIUM [Concomitant]
     Active Substance: WARFARIN SODIUM
     Dosage: 3.60 UNK
     Route: 048
     Dates: start: 201609, end: 201611
  54. WARFARIN SODIUM [Concomitant]
     Active Substance: WARFARIN SODIUM
     Dosage: 3.60 UNK
     Route: 048
     Dates: start: 201611, end: 201702
  55. WARFARIN SODIUM [Concomitant]
     Active Substance: WARFARIN SODIUM
     Dosage: 2 UNK
     Route: 048
     Dates: start: 20180413, end: 20190409
  56. CALCIUM CARBONATE [Concomitant]
     Active Substance: CALCIUM CARBONATE
     Indication: Short-bowel syndrome
     Dosage: 600 UNK
     Route: 048
     Dates: end: 20171018
  57. CALCIUM CARBONATE [Concomitant]
     Active Substance: CALCIUM CARBONATE
     Indication: Supplementation therapy
     Dosage: 600 MILLIGRAM, QD
     Route: 048
     Dates: start: 20160409, end: 20170329
  58. CALCIUM CARBONATE [Concomitant]
     Active Substance: CALCIUM CARBONATE
     Dosage: 1000 MILLIGRAM, QD
     Route: 048
     Dates: start: 20160409
  59. CALCIUM CARBONATE [Concomitant]
     Active Substance: CALCIUM CARBONATE
     Dosage: 600 MILLIGRAM, TID
     Route: 048
     Dates: start: 20190726, end: 2019
  60. CALCIUM CARBONATE [Concomitant]
     Active Substance: CALCIUM CARBONATE
     Dosage: 600 MILLIGRAM, QD
     Route: 048
     Dates: start: 20200214
  61. CALCIUM CARBONATE [Concomitant]
     Active Substance: CALCIUM CARBONATE
     Dosage: 500 MILLIGRAM, QD
     Route: 048
     Dates: start: 20200214
  62. CHOLECALCIFEROL [Concomitant]
     Active Substance: CHOLECALCIFEROL
     Indication: Short-bowel syndrome
     Dosage: 100000 INTERNATIONAL UNIT, MONTHLY
     Route: 048
     Dates: start: 20200214
  63. LORAZEPAM [Concomitant]
     Active Substance: LORAZEPAM
     Indication: Small intestinal obstruction
     Dosage: 2 MILLIGRAM
     Route: 048
     Dates: start: 2006
  64. NEXIUM [Concomitant]
     Active Substance: ESOMEPRAZOLE MAGNESIUM
     Indication: Small intestinal obstruction
     Dosage: 20 MILLIGRAM, QD
     Route: 048
     Dates: start: 2006, end: 2019
  65. FERROUS SULFATE [Concomitant]
     Active Substance: FERROUS SULFATE
     Indication: Supplementation therapy
     Dosage: 80 MILLIGRAM, QD
     Route: 048
     Dates: start: 20161021
  66. FERROUS SULFATE [Concomitant]
     Active Substance: FERROUS SULFATE
     Indication: Anaemia
     Dosage: 80 MILLIGRAM, QD
     Route: 048
     Dates: start: 201611, end: 201703
  67. ESCITALOPRAM OXALATE [Concomitant]
     Active Substance: ESCITALOPRAM OXALATE
     Indication: Depression
     Dosage: 10 MILLIGRAM, QD
     Route: 048
  68. CALCIUM [Concomitant]
     Active Substance: CALCIUM
     Indication: Supplementation therapy
     Dosage: 1 GRAM, QD
     Route: 048
     Dates: end: 201612
  69. SODIUM BICARBONATE [Concomitant]
     Active Substance: SODIUM BICARBONATE
     Indication: Supplementation therapy
     Dosage: 600 MILLIGRAM
     Route: 048
     Dates: start: 201612
  70. SODIUM BICARBONATE [Concomitant]
     Active Substance: SODIUM BICARBONATE
     Indication: Short-bowel syndrome
     Dosage: 600 MILLIGRAM, BID
     Route: 048
     Dates: start: 20190726
  71. SODIUM BICARBONATE [Concomitant]
     Active Substance: SODIUM BICARBONATE
     Dosage: 1000 MILLIGRAM, TID
     Route: 048
     Dates: start: 20191024
  72. TAUROLIDINE CITRATE [Concomitant]
     Indication: Thrombosis
     Dosage: 2 MILLILITER
     Route: 042
     Dates: end: 201606
  73. ALBUMIN HUMAN [Concomitant]
     Active Substance: ALBUMIN HUMAN
     Indication: Hypoalbuminaemia
     Dosage: 40 GRAM, QD
     Route: 042
  74. AZINC [Concomitant]
     Indication: Supplementation therapy
     Dosage: 1 DOSAGE FORM, BID
     Route: 048
     Dates: end: 201612
  75. AZINC [Concomitant]
     Dosage: 10 MILLIGRAM
     Route: 048
     Dates: start: 20190222, end: 20190726
  76. RAMIPRIL [Concomitant]
     Active Substance: RAMIPRIL
     Indication: Hypertension
     Dosage: 6 MILLIGRAM, QD
     Route: 048
     Dates: start: 201311, end: 2016
  77. CALCIUM PHOSPHATE, DIBASIC, ANHYDROUS\MAGNESIUM GLYCEROPHOSPHATE\PHOSP [Concomitant]
     Active Substance: CALCIUM PHOSPHATE, DIBASIC, ANHYDROUS\MAGNESIUM GLYCEROPHOSPHATE\PHOSPHORIC ACID\SODIUM PHOSPHATE, D
     Indication: Supplementation therapy
     Dosage: 16 DOSAGE FORM, BID
     Route: 048
     Dates: start: 20191116, end: 20191126
  78. CALCIUM PHOSPHATE, DIBASIC, ANHYDROUS\MAGNESIUM GLYCEROPHOSPHATE\PHOSP [Concomitant]
     Active Substance: CALCIUM PHOSPHATE, DIBASIC, ANHYDROUS\MAGNESIUM GLYCEROPHOSPHATE\PHOSPHORIC ACID\SODIUM PHOSPHATE, D
     Indication: Short-bowel syndrome
     Dosage: 26 DOSAGE FORM, TID
     Route: 048
     Dates: start: 20191116, end: 20191126
  79. .ALPHA.-TOCOPHEROL ACETATE, D- [Concomitant]
     Active Substance: .ALPHA.-TOCOPHEROL ACETATE, D-
     Indication: Supplementation therapy
     Dosage: 600 MILLIGRAM, QD
     Route: 048
     Dates: start: 201311
  80. FUROSEMIDE [Concomitant]
     Active Substance: FUROSEMIDE
     Indication: Oedema peripheral
     Dosage: 80 MILLIGRAM, QD
     Route: 048
     Dates: start: 20160907, end: 20160922
  81. FUROSEMIDE [Concomitant]
     Active Substance: FUROSEMIDE
     Dosage: 80 MILLIGRAM, QD
     Route: 048
     Dates: start: 20161117, end: 20161212
  82. PYRIDOXINE [Concomitant]
     Active Substance: PYRIDOXINE
     Indication: Supplementation therapy
     Dosage: 260 MILLIGRAM, QD
     Route: 048
     Dates: start: 20160922, end: 20161111
  83. BEVITIN [Concomitant]
     Indication: Supplementation therapy
     Dosage: 260 MILLIGRAM, QD
     Route: 048
     Dates: start: 20160922, end: 20161117
  84. Prosone [Concomitant]
     Indication: Eczema
     Dosage: 0.06 INTERNATIONAL UNIT, QD
     Route: 061
     Dates: start: 20161117, end: 2017
  85. CEFTRIAXONE [Concomitant]
     Active Substance: CEFTRIAXONE
     Indication: Pneumonia
     Dosage: 1 GRAM, QD
     Route: 048
     Dates: start: 20161220, end: 20170106
  86. AMOXICILLIN [Concomitant]
     Active Substance: AMOXICILLIN
     Indication: Infection
     Dosage: 2 GRAM
     Route: 048
     Dates: start: 20170217, end: 20170217
  87. FLAGYL [Concomitant]
     Active Substance: METRONIDAZOLE\METRONIDAZOLE HYDROCHLORIDE
     Indication: Infection
     Dosage: 600 MILLIGRAM, TID
     Route: 048
     Dates: start: 20170222, end: 20170225
  88. GENTAMICIN [Concomitant]
     Active Substance: GENTAMICIN
     Indication: Infection
     Dosage: 260 MILLIGRAM, QD
     Route: 048
     Dates: start: 20170222, end: 20170224
  89. VANCOMYCIN [Concomitant]
     Active Substance: VANCOMYCIN
     Indication: Infection
     Dosage: 160 GRAM, QD
     Route: 048
     Dates: start: 20170224, end: 201709
  90. OFLOXACIN [Concomitant]
     Active Substance: OFLOXACIN
     Indication: Sepsis
     Dosage: 200 MILLIGRAM, TID
     Route: 048
     Dates: start: 20170224, end: 20170430
  91. BACTRIM [Concomitant]
     Active Substance: SULFAMETHOXAZOLE\TRIMETHOPRIM
     Indication: Sepsis
     Dosage: 800 MILLIGRAM, QD
     Route: 048
     Dates: start: 20170224, end: 20170430
  92. LOVENOX [Concomitant]
     Active Substance: ENOXAPARIN SODIUM
     Indication: Thrombosis
     Dosage: 0.40 MILLILITER, QD
     Route: 058
     Dates: start: 20170224, end: 20170307
  93. LOVENOX [Concomitant]
     Active Substance: ENOXAPARIN SODIUM
     Indication: Superior vena cava syndrome
     Dosage: 6000 INTERNATIONAL UNIT, BID
     Route: 058
     Dates: start: 201710, end: 2018
  94. LOVENOX [Concomitant]
     Active Substance: ENOXAPARIN SODIUM
     Dosage: 0.60 UNK
     Route: 058
     Dates: start: 20170604, end: 20170731
  95. LOVENOX [Concomitant]
     Active Substance: ENOXAPARIN SODIUM
     Dosage: 0.60 UNK
     Route: 058
     Dates: start: 20171015, end: 2018
  96. TRAMADOL HYDROCHLORIDE [Concomitant]
     Active Substance: TRAMADOL HYDROCHLORIDE
     Indication: Back pain
     Dosage: 60 MILLIGRAM, QD
     Route: 048
     Dates: start: 20170217, end: 20170318
  97. TRAMADOL HYDROCHLORIDE [Concomitant]
     Active Substance: TRAMADOL HYDROCHLORIDE
     Dosage: 100 MILLIGRAM
     Route: 048
     Dates: start: 20170318, end: 201705
  98. NEFOPAM [Concomitant]
     Active Substance: NEFOPAM
     Indication: Back pain
     Dosage: 1 DOSAGE FORM
     Route: 042
     Dates: start: 20170217, end: 20170318
  99. NEFOPAM [Concomitant]
     Active Substance: NEFOPAM
     Indication: Pain
     Dosage: 20 MILLIGRAM
     Route: 042
     Dates: start: 20191027, end: 20191121
  100. SODIUM BENZOATE [Concomitant]
     Active Substance: SODIUM BENZOATE
     Indication: Supplementation therapy
     Dosage: 260 MILLIGRAM
     Route: 048
     Dates: start: 20171202
  101. INNOHEP [Concomitant]
     Active Substance: TINZAPARIN SODIUM
     Indication: Vena cava thrombosis
     Dosage: 10000 INTERNATIONAL UNIT, QD
     Route: 058
     Dates: start: 201705, end: 20170704
  102. LEUCOVORIN CALCIUM [Concomitant]
     Active Substance: LEUCOVORIN CALCIUM
     Indication: Supplementation therapy
     Dosage: 26 MILLIGRAM, QD
     Route: 048
     Dates: start: 20170607, end: 20170906
  103. CALCIUM\VITAMIN D [Concomitant]
     Active Substance: CALCIUM\VITAMIN D
     Indication: Supplementation therapy
     Dosage: 26 MILLIGRAM, QD
     Route: 048
     Dates: start: 20171013, end: 20180221
  104. EUPANTOL [Concomitant]
     Active Substance: PANTOPRAZOLE SODIUM
     Indication: Short-bowel syndrome
     Dosage: 20 MILLIGRAM, QD
     Route: 048
     Dates: start: 20171013, end: 20180221
  105. VITAMIN B12 [Concomitant]
     Active Substance: CYANOCOBALAMIN
     Indication: Supplementation therapy
     Dosage: 1 DOSAGE FORM, 1/WEEK
     Route: 048
     Dates: start: 20180413
  106. THIAMINE [Concomitant]
     Active Substance: THIAMINE
     Indication: Short-bowel syndrome
     Dosage: 260 MILLIGRAM, QD
     Route: 048
     Dates: start: 20191016
  107. PANTOPRAZOLE [Concomitant]
     Active Substance: PANTOPRAZOLE
     Indication: Prophylaxis
     Dosage: 20 MILLIGRAM, QD
     Route: 048
     Dates: start: 20191009
  108. POTASSIUM CHLORIDE [Concomitant]
     Active Substance: POTASSIUM CHLORIDE
     Indication: Short-bowel syndrome
     Dosage: 600 MILLIGRAM, TID
     Route: 048
     Dates: start: 20191021
  109. WARFARIN [Concomitant]
     Active Substance: WARFARIN
     Indication: Peripheral arterial occlusive disease
     Dosage: 1 MILLIGRAM, QD
     Route: 048
     Dates: start: 20191009, end: 20191028
  110. WARFARIN [Concomitant]
     Active Substance: WARFARIN
     Indication: Thrombosis prophylaxis
     Dosage: 2 UNK
     Route: 048
     Dates: start: 20191121
  111. WARFARIN [Concomitant]
     Active Substance: WARFARIN
     Dosage: 2 UNK
     Route: 048
     Dates: start: 20191126
  112. WARFARIN [Concomitant]
     Active Substance: WARFARIN
     Dosage: 1.50 MILLIGRAM, QD
     Route: 048
     Dates: start: 20191125
  113. ENOXAPARIN [Concomitant]
     Active Substance: ENOXAPARIN
     Indication: Peripheral arterial occlusive disease
     Dosage: 6000 INTERNATIONAL UNIT, BID
     Route: 058
     Dates: start: 20191009, end: 20191128
  114. ASPIRIN [Concomitant]
     Active Substance: ASPIRIN
     Indication: Thrombosis prophylaxis
     Dosage: 76 MILLIGRAM, QD
     Route: 048
     Dates: start: 20191026, end: 20191124
  115. Phosphore [Concomitant]
     Indication: Short-bowel syndrome
     Dosage: 6.6 INTERNATIONAL UNIT
     Route: 042
     Dates: start: 20191104
  116. TRAMADOL [Concomitant]
     Active Substance: TRAMADOL
     Indication: Pain prophylaxis
     Dosage: 60 MILLIGRAM
     Route: 048
     Dates: start: 20191024
  117. ACETAMINOPHEN [Concomitant]
     Active Substance: ACETAMINOPHEN
     Indication: Pain
     Dosage: 600 MILLIGRAM, TID
     Route: 048
     Dates: start: 20191009
  118. MAGNESIUM CITRATE [Concomitant]
     Active Substance: MAGNESIUM CITRATE
     Indication: Short-bowel syndrome
     Dosage: 200 MILLIGRAM, TID
     Route: 048
     Dates: start: 20191017, end: 20191121
  119. CALCIUM GLUCONATE [Concomitant]
     Active Substance: CALCIUM GLUCONATE
     Indication: Short-bowel syndrome
     Dosage: 16000 MILLIGRAM
     Route: 042
     Dates: start: 201911
  120. CHOLECALCIFEROL [Concomitant]
     Active Substance: CHOLECALCIFEROL
     Indication: Short-bowel syndrome
     Dosage: 100000 INTERNATIONAL UNIT, MONTHLY
     Route: 048
     Dates: start: 20200214
  121. MAGNESIUM SULFATE [Concomitant]
     Active Substance: MAGNESIUM SULFATE
     Indication: Short-bowel syndrome
     Dosage: 16000 MILLIGRAM
     Route: 042
     Dates: start: 201911
  122. MAGNESIUM SULFATE [Concomitant]
     Active Substance: MAGNESIUM SULFATE
     Dosage: 15000 MILLIGRAM
     Route: 042
     Dates: start: 201911

REACTIONS (1)
  - Weight decreased [Recovered/Resolved]

NARRATIVE: CASE EVENT DATE: 20180921
